FAERS Safety Report 4307567-2 (Version None)
Quarter: 2004Q1

REPORT INFORMATION
  Report Type: 
  Country: None (occurrence: None)
  Receive Date: 20040226
  Receipt Date: 20040213
  Transmission Date: 20041129
  Serious: Yes (Death, Other)
  Sender: FDA-Public Use
  Company Number: 9823944

PATIENT
  Age: 13 Year
  Sex: Male
  Weight: 45.3597 kg

DRUGS (2)
  1. ZOLOFT [Suspect]
     Indication: DEPRESSION
     Dosage: 50 MG (DAILY), ORAL
     Route: 048
     Dates: start: 19970722, end: 19970727
  2. ZOLOFT [Suspect]
     Indication: MAJOR DEPRESSION
     Dosage: 50 MG (DAILY), ORAL
     Route: 048
     Dates: start: 19970722, end: 19970727

REACTIONS (14)
  - ABNORMAL BEHAVIOUR [None]
  - AKATHISIA [None]
  - ANGER [None]
  - ASPHYXIA [None]
  - COMPLETED SUICIDE [None]
  - CONDITION AGGRAVATED [None]
  - DYSPEPSIA [None]
  - DYSPHONIA [None]
  - MENTAL DISORDER [None]
  - NIGHTMARE [None]
  - PANIC ATTACK [None]
  - PSYCHOMOTOR HYPERACTIVITY [None]
  - RAPID EYE MOVEMENTS SLEEP ABNORMAL [None]
  - SEROTONIN SYNDROME [None]
